FAERS Safety Report 6547265-8 (Version None)
Quarter: 2010Q1

REPORT INFORMATION
  Report Type: 
  Country: None (occurrence: None)
  Receive Date: 20100122
  Receipt Date: 20090824
  Transmission Date: 20100710
  Serious: No
  Sender: FDA-Public Use
  Company Number: US-BAUSCH-2009BL004355

PATIENT
  Age: 62 Year
  Sex: Female

DRUGS (1)
  1. ZYLET [Suspect]
     Indication: EYE INFECTION
     Route: 047
     Dates: start: 20090817, end: 20090817

REACTIONS (4)
  - DIZZINESS [None]
  - EYE PAIN [None]
  - HEADACHE [None]
  - PHOTOPHOBIA [None]
